FAERS Safety Report 7986567-5 (Version None)
Quarter: 2011Q4

REPORT INFORMATION
  Report Type: 
  Country: None (occurrence: None)
  Receive Date: 20111216
  Receipt Date: 20110725
  Transmission Date: 20120403
  Serious: No
  Sender: FDA-Public Use
  Company Number: US-BRISTOL-MYERS SQUIBB COMPANY-15920952

PATIENT
  Age: 57 Year
  Sex: Female

DRUGS (8)
  1. ZETIA [Concomitant]
  2. FLEXERIL [Concomitant]
  3. LISINOPRIL [Concomitant]
  4. LAMICTAL [Concomitant]
  5. ABILIFY [Suspect]
  6. CYMBALTA [Concomitant]
  7. ADVAIR DISKUS 100/50 [Concomitant]
  8. TRANXENE [Concomitant]

REACTIONS (1)
  - HERPES VIRUS INFECTION [None]
